FAERS Safety Report 9869645 (Version 1)
Quarter: 2014Q1

REPORT INFORMATION
  Report Type: Spontaneous
  Country: US (occurrence: US)
  Receive Date: 20140205
  Receipt Date: 20140205
  Transmission Date: 20141002
  Serious: Yes (Hospitalization, Congenital Anomaly, Other)
  Sender: FDA-Public Use
  Company Number: US-ACCORD-021670

PATIENT
  Sex: 0

DRUGS (3)
  1. MYCOPHENOLIC ACID [Suspect]
     Indication: IMMUNOSUPPRESSION
     Route: 064
  2. TACROLIMUS [Suspect]
     Indication: IMMUNOSUPPRESSION
     Route: 064
  3. PREDNISONE [Suspect]
     Indication: IMMUNOSUPPRESSION
     Route: 064

REACTIONS (6)
  - Ventricular septal defect [Recovered/Resolved]
  - Respiratory distress [Recovered/Resolved]
  - Nasal septum deviation [Recovered/Resolved]
  - Congenital nose malformation [Recovered/Resolved]
  - Cyst [Unknown]
  - Foetal exposure during pregnancy [Unknown]
